FAERS Safety Report 18921314 (Version 1)
Quarter: 2021Q1

REPORT INFORMATION
  Report Type: Spontaneous
  Country: US (occurrence: US)
  Receive Date: 20210222
  Receipt Date: 20210222
  Transmission Date: 20210420
  Serious: Yes (Other)
  Sender: FDA-Public Use
  Company Number: US-GLAXOSMITHKLINE-US2021GSK031731

PATIENT
  Sex: Male

DRUGS (4)
  1. ZANTAC [Suspect]
     Active Substance: RANITIDINE HYDROCHLORIDE
     Indication: DYSPEPSIA
     Dosage: 150 MG, EVERY OTHER DAY
     Route: 065
     Dates: start: 198001, end: 201911
  2. RANITIDINE. [Suspect]
     Active Substance: RANITIDINE
     Indication: DYSPEPSIA
     Dosage: UNKNOWN AT THIS TIME, I USED RANITIDINE WHEN I WAS OUT OF ZANTAC.
     Route: 065
     Dates: start: 198001, end: 201911
  3. RANITIDINE CAPSULE [Suspect]
     Active Substance: RANITIDINE
     Indication: DYSPEPSIA
     Dosage: UNKNOWN AT THIS TIME, I USED RANITIDINE WHEN I WAS OUT OF ZANTAC.
     Route: 065
     Dates: start: 198001, end: 201911
  4. ZANTAC [Suspect]
     Active Substance: RANITIDINE HYDROCHLORIDE
     Indication: DYSPEPSIA
     Dosage: 150 MG, EVERY OTHER DAY
     Route: 065
     Dates: start: 198001, end: 201911

REACTIONS (1)
  - Colorectal cancer [Unknown]
